FAERS Safety Report 6806594-0 (Version None)
Quarter: 2010Q2

REPORT INFORMATION
  Report Type: 
  Country: None (occurrence: None)
  Receive Date: 20100629
  Receipt Date: 20080521
  Transmission Date: 20101027
  Serious: No
  Sender: FDA-Public Use
  Company Number: US-PFIZER INC-2008015993

PATIENT
  Age: 84 Year
  Sex: Female
  Weight: 69.545 kg

DRUGS (7)
  1. TIKOSYN [Suspect]
     Indication: ARRHYTHMIA
     Route: 048
     Dates: start: 20070801
  2. ACTOS [Suspect]
     Indication: DIABETES MELLITUS
     Dates: start: 20070101
  3. LISINOPRIL [Concomitant]
  4. TRICOR [Concomitant]
  5. NORVASC [Concomitant]
  6. WARFARIN SODIUM [Concomitant]
  7. DIABETA [Concomitant]
     Indication: DIABETES MELLITUS

REACTIONS (2)
  - OEDEMA PERIPHERAL [None]
  - WEIGHT INCREASED [None]
